FAERS Safety Report 8925562 (Version 1)
Quarter: 2012Q4

REPORT INFORMATION
  Report Type: 
  Country: US (occurrence: US)
  Receive Date: 20121126
  Receipt Date: 20121126
  Transmission Date: 20130627
  Serious: Yes (Hospitalization, Other)
  Sender: FDA-Public Use
  Company Number: US-BAYER-2012-120094

PATIENT
  Age: 29 Year
  Sex: Female

DRUGS (7)
  1. YAZ [Suspect]
  2. GIANVI [Suspect]
  3. BUPROPION SR [Concomitant]
     Dosage: 150 mg, BID 1 TABLET
     Route: 048
  4. LEVOTHYROXIN [Concomitant]
     Dosage: 75 ?g, One tablet
     Route: 048
  5. TRAZODONE [Concomitant]
     Dosage: 50 mg,1 tablet once a day at bedtime ,
     Route: 048
  6. SYNTHROID [Concomitant]
  7. NEXIUM [Concomitant]

REACTIONS (2)
  - Pulmonary embolism [None]
  - Deep vein thrombosis [None]
